FAERS Safety Report 24748683 (Version 2)
Quarter: 2025Q1

REPORT INFORMATION
  Report Type: Report from Study
  Country: US (occurrence: US)
  Receive Date: 20241218
  Receipt Date: 20250115
  Transmission Date: 20250409
  Serious: Yes (Hospitalization, Other)
  Sender: OTSUKA
  Company Number: US-OTSUKA-2024_029271

PATIENT
  Age: 32 Year
  Sex: Male
  Weight: 189.15 kg

DRUGS (20)
  1. TOLVAPTAN [Suspect]
     Active Substance: TOLVAPTAN
     Indication: Congenital cystic kidney disease
     Dosage: 45 MG, QD (EVERY MORNING)
     Route: 065
     Dates: start: 20240325, end: 20241016
  2. TOLVAPTAN [Suspect]
     Active Substance: TOLVAPTAN
     Dosage: 15 MG, QD (EVERY AFTERNOON, 8 H APART)
     Route: 065
     Dates: start: 20240325, end: 20241016
  3. VALSARTAN [Concomitant]
     Active Substance: VALSARTAN
     Indication: Product used for unknown indication
     Dosage: 1 DF, QD
     Route: 048
     Dates: start: 20230808
  4. AMLODIPINE BESYLATE [Concomitant]
     Active Substance: AMLODIPINE BESYLATE
     Indication: Product used for unknown indication
     Dosage: 1 DF, QD
     Route: 048
  5. METOPROLOL TARTRATE [Concomitant]
     Active Substance: METOPROLOL TARTRATE
     Indication: Product used for unknown indication
     Dosage: 1 DF, BID
     Route: 048
  6. NICOTINE [Concomitant]
     Active Substance: NICOTINE
     Indication: Product used for unknown indication
     Route: 065
  7. LASIX [Concomitant]
     Active Substance: FUROSEMIDE
     Indication: Product used for unknown indication
     Dosage: 1 DF, QD
     Route: 048
  8. ZYLOPRIM [Concomitant]
     Active Substance: ALLOPURINOL
     Indication: Product used for unknown indication
     Dosage: 300 MG, QD (TAKE 1 TABLET 1 TIME EACH DAY)
     Route: 048
     Dates: start: 20240524
  9. ASPIRIN [Concomitant]
     Active Substance: ASPIRIN
     Indication: Product used for unknown indication
     Dosage: 81 MG, QD (TAKE 1 TABLET (81 MG TOTAL) BY MOUTH 1 (ONE) TIME EACH DAY)
     Route: 048
     Dates: start: 20231125
  10. VITAMIN B12 [Concomitant]
     Active Substance: CYANOCOBALAMIN
     Indication: Vitamin B12 deficiency
     Dosage: 500 ?G, QD (TAKE 1 TABLET (500 MCG TOTAL) BY MOUTH 1 (ONE) TIME EACH DAY)
     Route: 048
     Dates: start: 20240920
  11. FARXIGA [Concomitant]
     Active Substance: DAPAGLIFLOZIN PROPANEDIOL
     Indication: Product used for unknown indication
     Dosage: 10 MG, QD (TAKE 10 MG BY MOUTH 1 (ONE) TIME EACH DAY) (STOPPED)
     Route: 048
     Dates: start: 20231121, end: 202410
  12. ENTRESTO [Concomitant]
     Active Substance: SACUBITRIL\VALSARTAN
     Indication: Product used for unknown indication
     Dosage: 1 DF, QD (IN THE MORNING) (97-103 MG)
     Route: 048
     Dates: start: 20240712, end: 202410
  13. ENTRESTO [Concomitant]
     Active Substance: SACUBITRIL\VALSARTAN
     Dosage: 1 DF, QD (BEFORE BEDTIME) (97-103 MG)
     Route: 048
     Dates: start: 20240712, end: 202410
  14. VITAMIN D2 [Concomitant]
     Active Substance: ERGOCALCIFEROL
     Indication: Vitamin D deficiency
     Dosage: 1250 ?G, BIW (TAKE 1 CAPSULE (50,000 UNITS TOTAL) BY MOUTH 2 (TWO) TIMES A WEEK)
     Route: 048
     Dates: start: 20240801
  15. TOPROL XL [Concomitant]
     Active Substance: METOPROLOL SUCCINATE
     Indication: Product used for unknown indication
     Dosage: 1.5 DF, QD (150 MG TOTAL 1 TIME EACH DAY, DO NOT CHRUSH OR CHEW)
     Route: 048
     Dates: start: 20231207, end: 20241206
  16. OXYGEN [Concomitant]
     Active Substance: OXYGEN
     Indication: Supplementation therapy
     Route: 045
     Dates: start: 20230815
  17. SEMAGLUTIDE [Concomitant]
     Active Substance: SEMAGLUTIDE
     Indication: Weight decreased
     Dosage: 0.5 ML, QW (INJECT 0.5 ML (1 MG TOTAL) UNDER THE SKIN EVERY 7 DAYS)
     Route: 058
     Dates: start: 20240912
  18. DEMADEX [Concomitant]
     Active Substance: TORSEMIDE
     Indication: Product used for unknown indication
     Dosage: 20 MG, QD (TAKE 20 MG 1 TIME EACH DAY)
     Route: 048
     Dates: end: 202410
  19. ZOFRAN [Concomitant]
     Active Substance: ONDANSETRON HYDROCHLORIDE
     Indication: Nausea
     Route: 048
     Dates: start: 20240930, end: 20241016
  20. ZOFRAN [Concomitant]
     Active Substance: ONDANSETRON HYDROCHLORIDE
     Indication: Vomiting

REACTIONS (17)
  - Atrial fibrillation [Recovered/Resolved]
  - Congenital cystic kidney disease [Unknown]
  - Acute kidney injury [Not Recovered/Not Resolved]
  - Gastroenteritis viral [Recovered/Resolved]
  - Diverticulum intestinal [Unknown]
  - Carbon dioxide decreased [Recovered/Resolved]
  - Haematocrit increased [Not Recovered/Not Resolved]
  - Haemoglobin increased [Recovered/Resolved]
  - Lymphocyte count decreased [Recovered/Resolved]
  - Monocyte count increased [Unknown]
  - Neutrophil count increased [Unknown]
  - Protein total decreased [Recovered/Resolved]
  - Red blood cell count increased [Recovered/Resolved]
  - White blood cell count increased [Recovered/Resolved]
  - Blood potassium decreased [Recovered/Resolved]
  - Mean cell volume increased [Recovering/Resolving]
  - Blood sodium decreased [Recovered/Resolved]

NARRATIVE: CASE EVENT DATE: 20241013
